FAERS Safety Report 8502859-5 (Version None)
Quarter: 2012Q3

REPORT INFORMATION
  Report Type: 
  Country: None (occurrence: None)
  Receive Date: 20120711
  Receipt Date: 20120703
  Transmission Date: 20120928
  Serious: Yes (Hospitalization)
  Sender: FDA-Public Use
  Company Number: FR-SANOFI-AVENTIS-2012SA047912

PATIENT
  Age: 64 Year
  Sex: Female

DRUGS (5)
  1. RIFAMPICIN [Suspect]
     Indication: MENINGITIS TUBERCULOUS
     Route: 065
  2. ETHAMBUTOL HYDROCHLORIDE [Concomitant]
     Indication: MENINGITIS TUBERCULOUS
  3. PYRAZINAMIDE [Suspect]
     Indication: MENINGITIS TUBERCULOUS
     Route: 065
  4. MOXIFLOXACIN [Concomitant]
     Indication: MENINGITIS TUBERCULOUS
  5. ISONIAZID [Concomitant]
     Indication: MENINGITIS TUBERCULOUS

REACTIONS (4)
  - ALANINE AMINOTRANSFERASE INCREASED [None]
  - ACUTE HEPATIC FAILURE [None]
  - JAUNDICE [None]
  - DRUG INTOLERANCE [None]
